FAERS Safety Report 16960813 (Version 1)
Quarter: 2019Q4

REPORT INFORMATION
  Report Type: Other
  Country: DE (occurrence: DE)
  Receive Date: 20191025
  Receipt Date: 20191025
  Transmission Date: 20200122
  Serious: Yes (Other)
  Sender: FDA-Public Use
  Company Number: DE-AJANTA PHARMA USA INC.-2076040

PATIENT
  Age: 50 Year
  Sex: Male

DRUGS (1)
  1. SILDENAFIL (ANDA 206401) [Suspect]
     Active Substance: SILDENAFIL CITRATE

REACTIONS (3)
  - XIIth nerve injury [Unknown]
  - Vocal cord paralysis [Unknown]
  - Carotid artery dissection [Unknown]
